FAERS Safety Report 17141755 (Version 3)
Quarter: 2020Q1

REPORT INFORMATION
  Report Type: Report from Study
  Country: BR (occurrence: BR)
  Receive Date: 20191211
  Receipt Date: 20200313
  Transmission Date: 20200409
  Serious: Yes (Life-Threatening, Other)
  Sender: FDA-Public Use
  Company Number: NVSC2019BR063792

PATIENT
  Age: 49 Year
  Sex: Female

DRUGS (9)
  1. DIPIRONA [Suspect]
     Active Substance: METAMIZOLE
     Indication: PAIN
     Dosage: 1 G
     Route: 065
  2. AMITRIPTYLINE [Suspect]
     Active Substance: AMITRIPTYLINE
     Indication: PRODUCT USED FOR UNKNOWN INDICATION
     Route: 065
  3. FLUOXETINE HYDROCHLORIDE. [Suspect]
     Active Substance: FLUOXETINE HYDROCHLORIDE
     Indication: PRODUCT USED FOR UNKNOWN INDICATION
     Dosage: 20 MG
     Route: 065
  4. HYDROCHLOROTHIAZIDE. [Suspect]
     Active Substance: HYDROCHLOROTHIAZIDE
     Indication: PRODUCT USED FOR UNKNOWN INDICATION
     Dosage: 25 MG
     Route: 065
  5. LOSARTAN. [Suspect]
     Active Substance: LOSARTAN
     Indication: PRODUCT USED FOR UNKNOWN INDICATION
     Route: 065
  6. PREDNISONE. [Suspect]
     Active Substance: PREDNISONE
     Indication: PRODUCT USED FOR UNKNOWN INDICATION
     Dosage: 5 MG
     Route: 065
  7. BETAHISTINE DIHYDROCHLORIDE [Suspect]
     Active Substance: BETAHISTINE
     Indication: LABYRINTHITIS
     Dosage: 24 MG
     Route: 065
  8. SANDOSTATIN LAR DEPOT [Suspect]
     Active Substance: OCTREOTIDE ACETATE
     Indication: ACROMEGALY
     Dosage: 20 MG, Q4W
     Route: 065
     Dates: start: 20191112
  9. NOVALGINA [Suspect]
     Active Substance: METAMIZOLE SODIUM
     Indication: PAIN
     Dosage: 1 G
     Route: 065

REACTIONS (28)
  - Limb deformity [Unknown]
  - Insomnia [Unknown]
  - Tooth disorder [Not Recovered/Not Resolved]
  - Root canal infection [Not Recovered/Not Resolved]
  - Dental caries [Recovering/Resolving]
  - Tooth loss [Recovering/Resolving]
  - Coma [Recovered/Resolved]
  - Cerebrovascular accident [Unknown]
  - Nasal oedema [Unknown]
  - Crying [Unknown]
  - Teeth brittle [Recovering/Resolving]
  - Hand deformity [Unknown]
  - Headache [Unknown]
  - Syncope [Unknown]
  - Diarrhoea [Recovered/Resolved]
  - Nervousness [Unknown]
  - Lipoma [Not Recovered/Not Resolved]
  - Concomitant disease aggravated [Not Recovered/Not Resolved]
  - Menopausal disorder [Not Recovered/Not Resolved]
  - Dysentery [Recovered/Resolved]
  - Diarrhoea [Recovered/Resolved]
  - Foot deformity [Recovered/Resolved]
  - Epistaxis [Unknown]
  - Body height abnormal [Unknown]
  - Discomfort [Not Recovered/Not Resolved]
  - Memory impairment [Recovering/Resolving]
  - Pain [Recovering/Resolving]
  - Tooth malformation [Recovering/Resolving]

NARRATIVE: CASE EVENT DATE: 201011
